FAERS Safety Report 7073875-8 (Version None)
Quarter: 2010Q4

REPORT INFORMATION
  Report Type: 
  Country: None (occurrence: None)
  Receive Date: 20101029
  Receipt Date: 20100923
  Transmission Date: 20110411
  Serious: No
  Sender: FDA-Public Use
  Company Number: A0878410A

PATIENT
  Age: 76 Year
  Sex: Female

DRUGS (9)
  1. ADVAIR DISKUS 100/50 [Suspect]
     Indication: CHRONIC OBSTRUCTIVE PULMONARY DISEASE
     Dosage: 1PUFF TWICE PER DAY
     Route: 055
     Dates: start: 20091201, end: 20100817
  2. ADVAIR DISKUS 100/50 [Suspect]
     Dosage: 2PUFF TWICE PER DAY
     Route: 055
     Dates: start: 20100818
  3. FUROSEMIDE [Concomitant]
  4. KLOR-CON [Concomitant]
  5. LEVOTHYROXINE [Concomitant]
  6. SUMATRIPTAN SUCCINATE [Concomitant]
  7. CRESTOR [Concomitant]
  8. VITAMINS [Concomitant]
  9. AMITRIPTYLINE HCL [Concomitant]

REACTIONS (2)
  - DRY THROAT [None]
  - DYSPHONIA [None]
